FAERS Safety Report 8557173-9 (Version None)
Quarter: 2012Q3

REPORT INFORMATION
  Report Type: 
  Country: None (occurrence: None)
  Receive Date: 20120801
  Receipt Date: 20120725
  Transmission Date: 20120928
  Serious: Yes (Other)
  Sender: FDA-Public Use
  Company Number: BR-AMGEN-BRASP2012047766

PATIENT
  Age: 53 Year
  Sex: Female
  Weight: 85 kg

DRUGS (4)
  1. ENBREL [Suspect]
     Indication: PSORIASIS
     Dosage: 50 MG, 2X/WEEK
     Route: 058
     Dates: start: 20110501, end: 20120501
  2. LOSARTAN POTASSIUM [Concomitant]
     Dosage: 2 UNITS OF 50MG IN THE MORNING AND 1 UNIT AT NIGHT
  3. ENBREL [Suspect]
     Dosage: UNK
     Route: 058
  4. CLOBETASOL PROPIONATE [Concomitant]
     Dosage: UNK

REACTIONS (4)
  - LIMB INJURY [None]
  - DEPRESSION [None]
  - GAIT DISTURBANCE [None]
  - DRUG INEFFECTIVE [None]
